FAERS Safety Report 9541525 (Version 2)
Quarter: 2013Q4

REPORT INFORMATION
  Report Type: Spontaneous
  Country: US (occurrence: US)
  Receive Date: 20130923
  Receipt Date: 20131113
  Transmission Date: 20140711
  Serious: Yes (Death)
  Sender: FDA-Public Use
  Company Number: US-ELI_LILLY_AND_COMPANY-US201309003070

PATIENT
  Age: 44 Year
  Sex: Female

DRUGS (2)
  1. CYMBALTA [Suspect]
  2. OXYCODONE [Suspect]

REACTIONS (3)
  - Torsade de pointes [Fatal]
  - Ventricular arrhythmia [Fatal]
  - Overdose [Unknown]
